FAERS Safety Report 19716553 (Version 2)
Quarter: 2021Q3

REPORT INFORMATION
  Report Type: Spontaneous
  Country: US (occurrence: US)
  Receive Date: 20210819
  Receipt Date: 20210827
  Transmission Date: 20211014
  Serious: Yes (Other)
  Sender: FDA-Public Use
  Company Number: US-ELI_LILLY_AND_COMPANY-US202107009883

PATIENT
  Sex: Female

DRUGS (1)
  1. TRULICITY [Suspect]
     Active Substance: DULAGLUTIDE
     Indication: TYPE 2 DIABETES MELLITUS
     Dosage: 1.5 MG, UNKNOWN
     Route: 065
     Dates: start: 202011

REACTIONS (6)
  - Injury associated with device [Unknown]
  - Injection site injury [Unknown]
  - Decreased appetite [Unknown]
  - Arterial occlusive disease [Unknown]
  - Injection site haemorrhage [Unknown]
  - Nausea [Unknown]
